FAERS Safety Report 5350428-0 (Version None)
Quarter: 2007Q2

REPORT INFORMATION
  Report Type: 
  Country: None (occurrence: None)
  Receive Date: 20070605
  Receipt Date: 20070605
  Transmission Date: 20071010
  Serious: Yes (Hospitalization)
  Sender: FDA-Public Use
  Company Number: None

PATIENT
  Sex: Female
  Weight: 113.6 kg

DRUGS (2)
  1. CYCLOPHOSPHAMIDE [Suspect]
     Dosage: 1296 MG
  2. DOXORUBICIN HYDROCHLORIDE [Suspect]
     Dosage: 129 MG

REACTIONS (6)
  - ANAEMIA [None]
  - BODY TEMPERATURE INCREASED [None]
  - GROIN ABSCESS [None]
  - INFECTION [None]
  - NEUTROPENIA [None]
  - WHITE BLOOD CELL COUNT DECREASED [None]
